FAERS Safety Report 8352112-8 (Version None)
Quarter: 2012Q2

REPORT INFORMATION
  Report Type: 
  Country: None (occurrence: None)
  Receive Date: 20120510
  Receipt Date: 20120510
  Transmission Date: 20120825
  Serious: Yes (Life-Threatening, Hospitalization, Disabling, Congenital Anomaly, Other)
  Sender: FDA-Public Use
  Company Number: None

PATIENT
  Age: 44 Year
  Sex: Male
  Weight: 104.3273 kg

DRUGS (1)
  1. PRO-HEALTH MOUTH RINSE COMPLETE WITH FLORIDE CREST [Suspect]

REACTIONS (2)
  - TOOTH DISCOLOURATION [None]
  - ORAL MUCOSAL EXFOLIATION [None]
